FAERS Safety Report 6662331-4 (Version None)
Quarter: 2010Q1

REPORT INFORMATION
  Report Type: 
  Country: None (occurrence: None)
  Receive Date: 20100322
  Receipt Date: 20100310
  Transmission Date: 20100710
  Serious: No
  Sender: FDA-Public Use
  Company Number: 2010-00329

PATIENT
  Age: 36 Year
  Sex: Female
  Weight: 70.3075 kg

DRUGS (5)
  1. ZICAM COLD REMEDY RAPIDMELTS [Suspect]
     Dosage: Q 3 HRS, 1 DAY
     Dates: start: 20100224, end: 20100225
  2. VITAMIN D [Concomitant]
  3. MAGNESIUM [Concomitant]
  4. ZINC [Concomitant]
  5. FISH OIL [Concomitant]

REACTIONS (1)
  - AGEUSIA [None]
